FAERS Safety Report 23982827 (Version 1)
Quarter: 2024Q2

REPORT INFORMATION
  Report Type: Spontaneous
  Country: CN (occurrence: CN)
  Receive Date: 20240617
  Receipt Date: 20240617
  Transmission Date: 20240716
  Serious: Yes (Life-Threatening, Other)
  Sender: FDA-Public Use
  Company Number: CN-BAYER-2024A087136

PATIENT
  Age: 47 Year
  Sex: Male
  Weight: 88 kg

DRUGS (1)
  1. ULTRAVIST [Suspect]
     Active Substance: IOPROMIDE
     Indication: Computerised tomogram
     Dosage: 85 ML, ONCE
     Route: 042
     Dates: start: 20240612, end: 20240612

REACTIONS (8)
  - Confusional state [Recovered/Resolved]
  - Seizure [Recovering/Resolving]
  - Urinary incontinence [Recovering/Resolving]
  - Dizziness [Recovering/Resolving]
  - Hyperhidrosis [None]
  - Cold sweat [None]
  - Blood pressure immeasurable [None]
  - Oxygen saturation immeasurable [None]

NARRATIVE: CASE EVENT DATE: 20240612
